FAERS Safety Report 7949510-0 (Version None)
Quarter: 2011Q4

REPORT INFORMATION
  Report Type: 
  Country: None (occurrence: None)
  Receive Date: 20111130
  Receipt Date: 20111121
  Transmission Date: 20120403
  Serious: Yes (Other)
  Sender: FDA-Public Use
  Company Number: US-AMGEN-USASP2011049607

PATIENT
  Age: 56 Year
  Sex: Female

DRUGS (3)
  1. ENBREL [Suspect]
     Indication: RHEUMATOID ARTHRITIS
     Dosage: 50 MG, QWK
     Dates: start: 20110601, end: 20111103
  2. METHOTREXATE [Concomitant]
     Dosage: 2.5 MG, UNK
     Dates: start: 20050101
  3. ENBREL [Suspect]
     Dosage: 50 MG, QWK

REACTIONS (22)
  - PLEURISY [None]
  - RHEUMATOID ARTHRITIS [None]
  - EPISTAXIS [None]
  - STRESS [None]
  - ORAL HERPES [None]
  - TACHYCARDIA [None]
  - APHTHOUS STOMATITIS [None]
  - FATIGUE [None]
  - HYPOTENSION [None]
  - INJECTION SITE HAEMORRHAGE [None]
  - LARYNGITIS [None]
  - NASOPHARYNGITIS [None]
  - PYREXIA [None]
  - CHEST PAIN [None]
  - HEART RATE INCREASED [None]
  - COUGH [None]
  - DEPRESSION [None]
  - DIZZINESS [None]
  - INCREASED TENDENCY TO BRUISE [None]
  - RESPIRATORY TRACT INFECTION [None]
  - RHEUMATOID LUNG [None]
  - SINUS CONGESTION [None]
